FAERS Safety Report 10527168 (Version 2)
Quarter: 2014Q4

REPORT INFORMATION
  Report Type: Spontaneous
  Country: BR (occurrence: BR)
  Receive Date: 20141020
  Receipt Date: 20141105
  Transmission Date: 20150528
  Serious: Yes (Other)
  Sender: FDA-Public Use
  Company Number: BR-SA-2014SA141058

PATIENT
  Sex: Female
  Weight: 80 kg

DRUGS (3)
  1. LANTUS [Suspect]
     Active Substance: INSULIN GLARGINE
     Indication: TYPE 2 DIABETES MELLITUS
     Route: 058
  2. CLIKSTAR [Concomitant]
     Active Substance: CLIKSTAR
     Indication: DEVICE THERAPY
  3. HUMALOG [Concomitant]
     Active Substance: INSULIN LISPRO
     Dosage: 3-5 IU (DEPENDING ON THE BLOOD GLUCOSE LEVEL).

REACTIONS (3)
  - Deafness [Recovering/Resolving]
  - Labyrinthitis [Recovered/Resolved]
  - Dizziness [Recovered/Resolved]
